FAERS Safety Report 9563265 (Version 1)
Quarter: 2013Q3

REPORT INFORMATION
  Report Type: Spontaneous
  Country: FR (occurrence: FR)
  Receive Date: 20130927
  Receipt Date: 20130927
  Transmission Date: 20140515
  Serious: Yes (Other)
  Sender: FDA-Public Use
  Company Number: PHHY2013FR107564

PATIENT
  Age: 69 Year
  Sex: Female

DRUGS (4)
  1. ACLASTA [Suspect]
     Indication: OSTEITIS DEFORMANS
     Dosage: 5 MG, (1 DF)
     Route: 042
     Dates: start: 20110221
  2. LIPANTHYL [Concomitant]
     Dosage: 1 DF, QD
     Route: 048
  3. COAPROVEL [Concomitant]
     Dosage: 1 DF, QD
     Route: 048
  4. IMOVANE [Concomitant]
     Dosage: UNK UKN, PRN
     Route: 048

REACTIONS (2)
  - Prothrombin time shortened [Not Recovered/Not Resolved]
  - Hypocalcaemia [Recovered/Resolved]
